FAERS Safety Report 6978974-4 (Version None)
Quarter: 2010Q3

REPORT INFORMATION
  Report Type: 
  Country: None (occurrence: None)
  Receive Date: 20100913
  Receipt Date: 20100910
  Transmission Date: 20110219
  Serious: Yes (Other)
  Sender: FDA-Public Use
  Company Number: GB-SHIRE-SPV1-2010-01519

PATIENT
  Sex: Female
  Weight: 51 kg

DRUGS (2)
  1. MEZAVANT XL [Suspect]
     Indication: COLITIS ULCERATIVE
     Dosage: 2.4 G, 1X/DAY:QD
     Route: 048
     Dates: start: 20100603, end: 20100729
  2. PREDNISOLONE [Concomitant]
     Indication: COLITIS ULCERATIVE
     Dosage: 40 MG REDUCING TO 0MG OVER 8 WEEKS, 1X/DAY:QD
     Route: 048
     Dates: start: 20100603, end: 20100729

REACTIONS (1)
  - NEUTROPENIA [None]
